FAERS Safety Report 9707069 (Version 1)
Quarter: 2013Q4

REPORT INFORMATION
  Report Type: Spontaneous
  Country: US (occurrence: US)
  Receive Date: 20131125
  Receipt Date: 20131125
  Transmission Date: 20140711
  Serious: No
  Sender: FDA-Public Use
  Company Number: US-PFIZER INC-2013334770

PATIENT
  Age: 45 Year
  Sex: Female

DRUGS (1)
  1. PRISTIQ [Suspect]
     Dosage: 250 MG, UNK
     Dates: start: 2008

REACTIONS (2)
  - Hot flush [Unknown]
  - Hyperhidrosis [Unknown]
